FAERS Safety Report 5004627-8 (Version None)
Quarter: 2006Q2

REPORT INFORMATION
  Report Type: 
  Country: None (occurrence: None)
  Receive Date: 20060512
  Receipt Date: 20060428
  Transmission Date: 20061013
  Serious: Yes (Hospitalization)
  Sender: FDA-Public Use
  Company Number: T200600101

PATIENT
  Age: 60 Year
  Sex: Male

DRUGS (13)
  1. HEXABRIX [Suspect]
     Indication: ARTERIOGRAM CORONARY
     Dosage: 200 ML, SINGLE, INTRA-ARTERIAL; SEE IMAGE
     Route: 013
     Dates: start: 20060214, end: 20060214
  2. HEXABRIX [Suspect]
     Indication: ARTERIOGRAM CORONARY
     Dosage: 200 ML, SINGLE, INTRA-ARTERIAL; SEE IMAGE
     Route: 013
     Dates: start: 20060214, end: 20060214
  3. CORVASAL(MOLSIDOMINE) [Suspect]
     Indication: ANGIOGRAM
     Dosage: 1 MG, TWICE DURING EXAM, INTRA-ARTERIAL
     Route: 013
     Dates: start: 20060214, end: 20060214
  4. HEPARIN [Concomitant]
  5. DILTIAZEM [Concomitant]
  6. ASPIRIN [Concomitant]
  7. ATORVASTATIN CALCIUM [Concomitant]
  8. ALLOPURINOL [Concomitant]
  9. MONTELUKAST (MONTELUKAST) [Concomitant]
  10. GINKGO BILOBA (GINKGO BILOBA) [Concomitant]
  11. DESLORATADINE (DESLORATADINE) [Concomitant]
  12. SALBUTAMOL SULFATE (SALBUTAMOL SULFATE) INHALER [Concomitant]
  13. BUDESONIDE [Concomitant]

REACTIONS (10)
  - ANAPHYLACTIC SHOCK [None]
  - CHILLS [None]
  - DERMATITIS EXFOLIATIVE [None]
  - HYPERTHERMIA [None]
  - HYPOTENSION [None]
  - LEUKOPENIA [None]
  - LIVEDO RETICULARIS [None]
  - MALAISE [None]
  - PROPIONIBACTERIUM INFECTION [None]
  - SOMNOLENCE [None]
